FAERS Safety Report 7292867-7 (Version None)
Quarter: 2011Q1

REPORT INFORMATION
  Report Type: 
  Country: None (occurrence: None)
  Receive Date: 20110215
  Receipt Date: 20110201
  Transmission Date: 20110831
  Serious: Yes (Hospitalization)
  Sender: FDA-Public Use
  Company Number: PHFR2011GB01053

PATIENT
  Sex: Male

DRUGS (2)
  1. CLOZARIL [Suspect]
     Indication: SCHIZOPHRENIA
     Dosage: UNK
     Route: 048
     Dates: start: 19970506, end: 20110127
  2. CHLORPROMAZINE [Concomitant]
     Dosage: UNK

REACTIONS (7)
  - AGITATION [None]
  - DYSPNOEA [None]
  - CARBON DIOXIDE INCREASED [None]
  - PERICARDIAL EFFUSION [None]
  - AFFECTIVE DISORDER [None]
  - RESPIRATORY FAILURE [None]
  - UNRESPONSIVE TO STIMULI [None]
